FAERS Safety Report 18062360 (Version 2)
Quarter: 2021Q4

REPORT INFORMATION
  Report Type: Report from Study
  Country: US (occurrence: US)
  Receive Date: 20200723
  Receipt Date: 20211026
  Transmission Date: 20220304
  Serious: Yes (Other)
  Sender: FDA-Public Use
  Company Number: NVSC2020US205306

PATIENT
  Sex: Male

DRUGS (1)
  1. GILENYA [Suspect]
     Active Substance: FINGOLIMOD HYDROCHLORIDE
     Indication: Multiple sclerosis
     Dosage: 0.5 MG, QD
     Route: 048

REACTIONS (8)
  - Suicidal behaviour [Unknown]
  - Abnormal behaviour [Unknown]
  - Social avoidant behaviour [Unknown]
  - Musculoskeletal disorder [Unknown]
  - Hypoaesthesia [Unknown]
  - Depression [Unknown]
  - Mood swings [Unknown]
  - Dizziness [Unknown]
